FAERS Safety Report 8977600 (Version 2)
Quarter: 2013Q1

REPORT INFORMATION
  Report Type: Spontaneous
  Country: US (occurrence: US)
  Receive Date: 20121220
  Receipt Date: 20130204
  Transmission Date: 20140127
  Serious: Yes (Other)
  Sender: FDA-Public Use
  Company Number: US-GLAXOSMITHKLINE-A1005909A

PATIENT
  Age: 68 Year
  Sex: Female

DRUGS (12)
  1. RYTHMOL [Suspect]
     Indication: ATRIAL FIBRILLATION
     Dosage: 300MG TWICE PER DAY
     Route: 048
     Dates: start: 20120815
  2. CARVEDILOL [Suspect]
     Indication: ATRIAL FIBRILLATION
     Route: 048
     Dates: start: 2012
  3. DIGOXIN [Suspect]
     Indication: ATRIAL FIBRILLATION
     Dosage: .125MG PER DAY
     Dates: start: 20120815
  4. WARFARIN [Suspect]
     Indication: ATRIAL FIBRILLATION
     Dosage: 5MG PER DAY
     Dates: start: 20120815
  5. LISINOPRIL [Concomitant]
  6. PRAVASTATIN [Concomitant]
  7. DEMADEX [Concomitant]
  8. HCTZ [Concomitant]
  9. CELEBREX [Concomitant]
  10. ASA [Concomitant]
  11. OMEPRAZOLE [Concomitant]
  12. PRAVACHOL [Concomitant]

REACTIONS (9)
  - Atrial fibrillation [Not Recovered/Not Resolved]
  - Renal failure [Recovering/Resolving]
  - Tinnitus [Not Recovered/Not Resolved]
  - Palpitations [Not Recovered/Not Resolved]
  - Drug ineffective [Unknown]
  - Heart rate irregular [Not Recovered/Not Resolved]
  - Heart rate increased [Unknown]
  - Feeling abnormal [Unknown]
  - Dizziness [Unknown]
